FAERS Safety Report 9240661 (Version 1)
Quarter: 2013Q2

REPORT INFORMATION
  Report Type: Spontaneous
  Country: US (occurrence: US)
  Receive Date: 20130418
  Receipt Date: 20130418
  Transmission Date: 20140414
  Serious: Yes (Hospitalization, Other)
  Sender: FDA-Public Use
  Company Number: US-SANOFI-AVENTIS-2012SA081940

PATIENT
  Age: 80 Year
  Sex: Male

DRUGS (20)
  1. LOVENOX [Suspect]
     Route: 065
     Dates: start: 20120621
  2. COUMADIN [Suspect]
     Route: 065
     Dates: start: 20120621
  3. ASPIRIN [Suspect]
     Route: 065
  4. BETA BLOCKING AGENTS [Concomitant]
  5. ANGIOTENSIN II ANTAGONISTS [Concomitant]
  6. HMG COA REDUCTASE INHIBITORS [Concomitant]
  7. ORGANIC NITRATES [Concomitant]
  8. DIURETICS [Concomitant]
  9. LANTUS [Concomitant]
  10. ORAL ANTIDIABETICS [Concomitant]
  11. AMARYL [Concomitant]
  12. PLACEBO [Concomitant]
  13. VERAPAMIL [Concomitant]
  14. DILTIAZEM [Concomitant]
  15. ZOSYN [Concomitant]
     Dates: start: 20120622
  16. VANCOMYCIN [Concomitant]
     Dates: start: 20120621
  17. HYDROCODONE [Concomitant]
     Dates: start: 20120621
  18. IBUPROFEN [Concomitant]
     Dates: start: 20120621
  19. AUGMENTIN [Concomitant]
     Dates: start: 20120621
  20. CLAVULANIC ACID [Concomitant]
     Dates: start: 20120621

REACTIONS (1)
  - Haemorrhage [Recovered/Resolved]
